FAERS Safety Report 9747686 (Version 1)
Quarter: 2013Q4

REPORT INFORMATION
  Report Type: Spontaneous
  Country: US (occurrence: None)
  Receive Date: 20131206
  Receipt Date: 20131206
  Transmission Date: 20140711
  Serious: Yes (Other)
  Sender: FDA-Public Use
  Company Number: AUR-APL-2013-10081

PATIENT
  Age: 37 Year
  Sex: Female

DRUGS (1)
  1. OLANZAPINE (OLANZAPINE) [Suspect]
     Indication: ANOREXIA NERVOSA
     Dosage: UNKNOWN

REACTIONS (1)
  - Acute hepatic failure [None]
